FAERS Safety Report 19732658 (Version 1)
Quarter: 2021Q3

REPORT INFORMATION
  Report Type: Spontaneous
  Country: US (occurrence: US)
  Receive Date: 20210823
  Receipt Date: 20210823
  Transmission Date: 20211014
  Serious: Yes (Hospitalization, Other)
  Sender: FDA-Public Use
  Company Number: US-AMGEN-USASP2021127710

PATIENT
  Age: 23 Year
  Sex: Female

DRUGS (20)
  1. INOTUZUMAB [Concomitant]
     Active Substance: INOTUZUMAB OZOGAMICIN
  2. TOCILIZUMAB. [Concomitant]
     Active Substance: TOCILIZUMAB
     Dosage: 8 MG/KG
     Route: 042
  3. VINCRISTINE [Concomitant]
     Active Substance: VINCRISTINE
  4. ARA?C [Concomitant]
     Active Substance: CYTARABINE
  5. BLINATUMOMAB [Suspect]
     Active Substance: BLINATUMOMAB
     Indication: B PRECURSOR TYPE ACUTE LEUKAEMIA
     Dosage: UNK
     Route: 065
  6. FLUDARABINE [Concomitant]
     Active Substance: FLUDARABINE PHOSPHATE
  7. 6?MERCAPTOPURINE MONOHYDRATE [Concomitant]
     Active Substance: MERCAPTOPURINE
  8. SILTUXIMAB [Concomitant]
     Active Substance: SILTUXIMAB
     Dosage: 11 MG/KG, ONE TIME DOSE
     Route: 042
  9. METHYLPREDNISOLONE. [Concomitant]
     Active Substance: METHYLPREDNISOLONE
     Dosage: 500 MILLIGRAM, BID
     Route: 042
  10. METHOTREXATE. [Concomitant]
     Active Substance: METHOTREXATE
  11. ADRIAMYCIN [Concomitant]
     Active Substance: DOXORUBICIN HYDROCHLORIDE
  12. KYMRIAH [Concomitant]
     Active Substance: TISAGENLECLEUCEL
  13. DEXAMETHASONE. [Concomitant]
     Active Substance: DEXAMETHASONE
     Dosage: 10 MILLIGRAM, Q6H
     Route: 042
  14. ANAKINRA [Concomitant]
     Active Substance: ANAKINRA
     Dosage: 100 MILLIGRAM, ONE TIME DOSE
     Route: 058
  15. ANAKINRA [Concomitant]
     Active Substance: ANAKINRA
     Dosage: 100 MILLIGRAM, QD
     Route: 058
  16. DEXAMETHASONE. [Concomitant]
     Active Substance: DEXAMETHASONE
     Dosage: 20 MILLIGRAM, Q6H
     Route: 042
  17. PREDNISONE. [Concomitant]
     Active Substance: PREDNISONE
  18. CYCLOPHOSPHAMIDE. [Concomitant]
     Active Substance: CYCLOPHOSPHAMIDE
  19. IDARUBICIN [Concomitant]
     Active Substance: IDARUBICIN
  20. DEXAMETHASONE. [Concomitant]
     Active Substance: DEXAMETHASONE
     Dosage: 10 MILLIGRAM, QD
     Route: 042

REACTIONS (4)
  - Systemic candida [Recovered/Resolved]
  - Pancytopenia [Unknown]
  - Acute lymphocytic leukaemia recurrent [Recovering/Resolving]
  - Meningitis candida [Recovered/Resolved]
